FAERS Safety Report 14754124 (Version 3)
Quarter: 2018Q2

REPORT INFORMATION
  Report Type: Spontaneous
  Country: JP (occurrence: JP)
  Receive Date: 20180412
  Receipt Date: 20180419
  Transmission Date: 20180711
  Serious: Yes (Other)
  Sender: FDA-Public Use
  Company Number: PHJP2018JP003896

PATIENT
  Age: 26 Year
  Sex: Male
  Weight: 85 kg

DRUGS (4)
  1. AZOPT [Suspect]
     Active Substance: BRINZOLAMIDE
     Indication: INTRAOCULAR PRESSURE INCREASED
  2. DUOTRAV COMBINATION OPHTHALMIC SOLUTION [Suspect]
     Active Substance: TIMOLOL MALEATE\TRAVOPROST
     Indication: INTRAOCULAR PRESSURE INCREASED
  3. AZOPT [Suspect]
     Active Substance: BRINZOLAMIDE
     Indication: GLAUCOMA
     Dosage: 1 GTT, BID
     Route: 047
     Dates: start: 20180110, end: 20180129
  4. DUOTRAV COMBINATION OPHTHALMIC SOLUTION [Suspect]
     Active Substance: TIMOLOL MALEATE\TRAVOPROST
     Indication: GLAUCOMA
     Dosage: 1 GTT, QD
     Route: 047
     Dates: start: 20180110, end: 20180220

REACTIONS (12)
  - Conjunctivitis allergic [Not Recovered/Not Resolved]
  - Conjunctivitis [Recovered/Resolved]
  - Concomitant disease aggravated [Not Recovered/Not Resolved]
  - Eye paraesthesia [Unknown]
  - Feeling hot [Unknown]
  - Blepharitis [Recovered/Resolved]
  - Eyelid disorder [Unknown]
  - Eyelids pruritus [Unknown]
  - Erythema of eyelid [Unknown]
  - Eyelid oedema [Unknown]
  - Ocular hyperaemia [Unknown]
  - Eyelid rash [Unknown]

NARRATIVE: CASE EVENT DATE: 20180119
